FAERS Safety Report 10524056 (Version 1)
Quarter: 2014Q4

REPORT INFORMATION
  Report Type: Spontaneous
  Country: US (occurrence: US)
  Receive Date: 20141017
  Receipt Date: 20141017
  Transmission Date: 20150528
  Serious: No
  Sender: FDA-Public Use
  Company Number: US-BAYER-2014-153407

PATIENT
  Age: 67 Year
  Sex: Female
  Weight: 81.18 kg

DRUGS (1)
  1. ALEVE [Suspect]
     Active Substance: NAPROXEN SODIUM
     Indication: HEADACHE
     Dosage: 2 DF, PRN
     Route: 048

REACTIONS (2)
  - Incorrect dosage administered [None]
  - Drug ineffective [None]
